FAERS Safety Report 22176613 (Version 18)
Quarter: 2025Q4

REPORT INFORMATION
  Report Type: Spontaneous
  Country: US (occurrence: US)
  Receive Date: 20230405
  Receipt Date: 20251027
  Transmission Date: 20260117
  Serious: No
  Sender: PFIZER
  Company Number: US-PFIZER INC-2020505985

PATIENT
  Age: 76 Year
  Sex: Female
  Weight: 99.773 kg

DRUGS (3)
  1. BOSULIF [Suspect]
     Active Substance: BOSUTINIB MONOHYDRATE
     Indication: Leukaemia
     Dosage: 200 MG, 1X/DAY (2 TABS)
     Route: 048
  2. BOSULIF [Suspect]
     Active Substance: BOSUTINIB MONOHYDRATE
     Dosage: 100 MG, 2X/DAY
     Route: 048
  3. BOSULIF [Suspect]
     Active Substance: BOSUTINIB MONOHYDRATE
     Dosage: 200 MG, 1X/DAY (2 TABLETS BY MOUTH DAILY, TAKE WITH FOOD)
     Route: 048

REACTIONS (4)
  - Weight increased [Unknown]
  - Memory impairment [Unknown]
  - Bladder disorder [Unknown]
  - Off label use [Unknown]
